FAERS Safety Report 14399294 (Version 2)
Quarter: 2018Q1

REPORT INFORMATION
  Report Type: Spontaneous
  Country: US (occurrence: US)
  Receive Date: 20180117
  Receipt Date: 20180302
  Transmission Date: 20180509
  Serious: No
  Sender: FDA-Public Use
  Company Number: US-JNJFOC-20171208765

PATIENT
  Age: 80 Year
  Sex: Male

DRUGS (15)
  1. CALCIUM CARBONATE. [Concomitant]
     Active Substance: CALCIUM CARBONATE
     Route: 048
  2. HYDROCHLORTHIAZID [Concomitant]
     Active Substance: HYDROCHLOROTHIAZIDE
     Route: 048
  3. LIPITOR [Concomitant]
     Active Substance: ATORVASTATIN CALCIUM
     Route: 048
  4. TYLENOL [Concomitant]
     Active Substance: ACETAMINOPHEN
     Route: 048
  5. CYANOCOBALAMIN W/FOLIC ACID [Concomitant]
     Route: 058
  6. PREDNISONE. [Concomitant]
     Active Substance: PREDNISONE
     Route: 048
  7. ASPIRIN. [Concomitant]
     Active Substance: ASPIRIN
     Route: 048
  8. FERROUS SULFATE. [Concomitant]
     Active Substance: FERROUS SULFATE
     Route: 048
  9. METAMUCIL [Concomitant]
     Active Substance: PLANTAGO SEED
     Route: 048
  10. ZYTIGA [Suspect]
     Active Substance: ABIRATERONE ACETATE
     Indication: PROSTATE CANCER
     Route: 048
     Dates: start: 20170706, end: 20171219
  11. VITAMIN D [Concomitant]
     Active Substance: CHOLECALCIFEROL
     Route: 048
  12. DOXAZOSIN [Concomitant]
     Active Substance: DOXAZOSIN\DOXAZOSIN MESYLATE
     Route: 048
  13. DOCUSATE [Concomitant]
     Active Substance: DOCUSATE
     Route: 048
  14. ROPINIROLE. [Concomitant]
     Active Substance: ROPINIROLE
     Route: 048
  15. ELIGARD [Concomitant]
     Active Substance: LEUPROLIDE ACETATE
     Route: 058

REACTIONS (3)
  - Drug dose omission [Unknown]
  - Drug ineffective [Unknown]
  - Haematuria [Unknown]

NARRATIVE: CASE EVENT DATE: 2017
